FAERS Safety Report 7295942-6 (Version None)
Quarter: 2011Q1

REPORT INFORMATION
  Report Type: 
  Country: None (occurrence: None)
  Receive Date: 20110204
  Receipt Date: 20110125
  Transmission Date: 20110831
  Serious: Yes (Other)
  Sender: FDA-Public Use
  Company Number: OMPQ-NO-1101S-0116

PATIENT
  Age: 87 Year
  Sex: Female

DRUGS (1)
  1. OMNIPAQUE 70 [Suspect]
     Indication: PRODUCT USED FOR UNKNOWN INDICATION
     Dosage: 70 ML, SINGLE DOSE, IV
     Route: 042
     Dates: start: 20110106, end: 20110106

REACTIONS (2)
  - INFUSION SITE EXTRAVASATION [None]
  - DRUG ADMINISTRATION ERROR [None]
